FAERS Safety Report 11131279 (Version 2)
Quarter: 2015Q2

REPORT INFORMATION
  Report Type: Spontaneous
  Country: US (occurrence: US)
  Receive Date: 20150522
  Receipt Date: 20150622
  Transmission Date: 20150821
  Serious: Yes (Hospitalization, Other)
  Sender: FDA-Public Use
  Company Number: US-009507513-1505USA005966

PATIENT
  Sex: Female
  Weight: 54.42 kg

DRUGS (4)
  1. FOSAMAX PLUS D [Suspect]
     Active Substance: ALENDRONATE SODIUM\CHOLECALCIFEROL
     Indication: BONE DENSITY DECREASED
     Dosage: 70 MG/2800IU, QW
     Route: 048
     Dates: start: 20070130, end: 201101
  2. ALENDRONATE SODIUM. [Suspect]
     Active Substance: ALENDRONATE SODIUM
     Indication: BONE DENSITY DECREASED
     Dosage: 70 MG/75CC, WEEKLY
     Route: 048
     Dates: start: 20051118, end: 20061030
  3. FOSAMAX [Suspect]
     Active Substance: ALENDRONATE SODIUM
     Indication: BONE DENSITY DECREASED
     Dosage: 70 MG, WEEKLY
     Route: 048
     Dates: start: 20031203, end: 20050902
  4. ALENDRONATE SODIUM. [Suspect]
     Active Substance: ALENDRONATE SODIUM
     Indication: BONE DENSITY DECREASED
     Dosage: 70 MG, QW
     Route: 048
     Dates: start: 20090406, end: 20101021

REACTIONS (19)
  - Chest pain [Unknown]
  - Osteoporosis [Unknown]
  - Femur fracture [Recovering/Resolving]
  - Coronary artery disease [Unknown]
  - Goitre [Unknown]
  - Type 2 diabetes mellitus [Unknown]
  - Hyperlipidaemia [Unknown]
  - Granuloma [Unknown]
  - Femur fracture [Unknown]
  - Herpes zoster [Unknown]
  - Lymph node calcification [Unknown]
  - Gastritis [Unknown]
  - Intramedullary rod insertion [Unknown]
  - Hypertension [Unknown]
  - Musculoskeletal pain [Unknown]
  - Pathological fracture [Unknown]
  - Intramedullary rod insertion [Unknown]
  - Chest pain [Unknown]
  - Osteoarthritis [Unknown]

NARRATIVE: CASE EVENT DATE: 20031219
